FAERS Safety Report 6250246-5 (Version None)
Quarter: 2009Q2

REPORT INFORMATION
  Report Type: 
  Country: None (occurrence: None)
  Receive Date: 20090626
  Receipt Date: 20090626
  Transmission Date: 20091009
  Serious: Yes (Other)
  Sender: FDA-Public Use
  Company Number: None

PATIENT
  Sex: Male
  Weight: 16.2 kg

DRUGS (15)
  1. CARBOPLATIN [Suspect]
     Indication: ANAPLASTIC ASTROCYTOMA
     Dosage: 265 MG QD X 3 DAYS IV
     Route: 042
     Dates: start: 20090617, end: 20090619
  2. CARBOPLATIN [Suspect]
  3. BIOTENE [Concomitant]
  4. CEFTAZIDIME [Concomitant]
  5. DIPHENHYDRAMINE HCL [Concomitant]
  6. FLUCONAZOLE [Concomitant]
  7. HEPARIN LOCK-FLUSH [Concomitant]
  8. KEPPRA [Concomitant]
  9. VANCOMYCIN [Concomitant]
  10. TYLENOL (CAPLET) [Concomitant]
  11. LACTULOSE [Concomitant]
  12. ZOFRAN [Concomitant]
  13. RETAVASE [Concomitant]
  14. BACTRIM [Concomitant]
  15. THIOTEPA [Concomitant]

REACTIONS (1)
  - HYPOKALAEMIA [None]
